FAERS Safety Report 5694156-0 (Version None)
Quarter: 2008Q2

REPORT INFORMATION
  Report Type: 
  Country: None (occurrence: None)
  Receive Date: 20080402
  Receipt Date: 20080326
  Transmission Date: 20081010
  Serious: Yes (Hospitalization)
  Sender: FDA-Public Use
  Company Number: TPA2008A00395

PATIENT
  Sex: Male

DRUGS (2)
  1. PIOGLITAZONE HCL [Suspect]
     Dosage: 1 IN 1 D, PER ORAL
     Route: 048
  2. LASIX [Concomitant]

REACTIONS (3)
  - CARDIAC FAILURE [None]
  - HYPOTENSION [None]
  - PNEUMONIA [None]
